FAERS Safety Report 10463516 (Version 1)
Quarter: 2014Q3

REPORT INFORMATION
  Report Type: Spontaneous
  Country: US (occurrence: None)
  Receive Date: 20140918
  Receipt Date: 20140918
  Transmission Date: 20150326
  Serious: Yes (Life-Threatening, Hospitalization)
  Sender: FDA-Public Use
  Company Number: None

PATIENT
  Age: 69 Year
  Sex: Male
  Weight: 94.2 kg

DRUGS (2)
  1. ASPIRIN. [Suspect]
     Active Substance: ASPIRIN
     Indication: CORONARY ARTERY DISEASE
     Route: 048
     Dates: start: 20070307, end: 20140727
  2. DABIGATRAN [Suspect]
     Active Substance: DABIGATRAN
     Indication: ATRIAL FLUTTER
     Route: 048
     Dates: start: 20140219, end: 20140727

REACTIONS (15)
  - Mitral valve incompetence [None]
  - Renal failure [None]
  - Gastric haemorrhage [None]
  - Cardiac failure [None]
  - Septic shock [None]
  - Dialysis [None]
  - Cardiac arrest [None]
  - Feeling abnormal [None]
  - Vomiting [None]
  - Hypotension [None]
  - Haemoglobin decreased [None]
  - Melaena [None]
  - Respiratory failure [None]
  - Skin ulcer [None]
  - Post procedural infection [None]

NARRATIVE: CASE EVENT DATE: 20140727
